FAERS Safety Report 10687251 (Version 3)
Quarter: 2017Q2

REPORT INFORMATION
  Report Type: Spontaneous
  Country: CA (occurrence: CA)
  Receive Date: 20150102
  Receipt Date: 20170511
  Transmission Date: 20170829
  Serious: Yes (Other)
  Sender: FDA-Public Use
  Company Number: CA-ROCHE-1516335

PATIENT
  Age: 65 Year
  Sex: Male

DRUGS (7)
  1. XOLAIR [Suspect]
     Active Substance: OMALIZUMAB
     Route: 058
     Dates: start: 20170502
  2. SALMETEROL [Concomitant]
     Active Substance: SALMETEROL
     Indication: PRODUCT USED FOR UNKNOWN INDICATION
     Route: 065
  3. XOLAIR [Suspect]
     Active Substance: OMALIZUMAB
     Indication: ASTHMA
     Route: 058
     Dates: start: 20110510
  4. ONBREZ [Suspect]
     Active Substance: INDACATEROL
     Indication: PRODUCT USED FOR UNKNOWN INDICATION
     Route: 055
  5. ALVESCO [Concomitant]
     Active Substance: CICLESONIDE
     Indication: PRODUCT USED FOR UNKNOWN INDICATION
     Route: 065
  6. PREDNISONE. [Concomitant]
     Active Substance: PREDNISONE
     Indication: PRODUCT USED FOR UNKNOWN INDICATION
     Route: 065
  7. XOLAIR [Suspect]
     Active Substance: OMALIZUMAB
     Route: 058
     Dates: start: 20170417

REACTIONS (3)
  - Obstructive airways disorder [Unknown]
  - Asthma [Unknown]
  - Sinusitis [Unknown]

NARRATIVE: CASE EVENT DATE: 20141216
